FAERS Safety Report 9242470 (Version 1)
Quarter: 2013Q2

REPORT INFORMATION
  Report Type: Spontaneous
  Country: NL (occurrence: NL)
  Receive Date: 20130419
  Receipt Date: 20130419
  Transmission Date: 20140414
  Serious: Yes (Other)
  Sender: FDA-Public Use
  Company Number: NL-ABBOTT-13X-114-1077495-00

PATIENT
  Age: 33 Year
  Sex: Female

DRUGS (1)
  1. KLACID [Suspect]
     Indication: RESPIRATORY TRACT INFECTION

REACTIONS (5)
  - Palpitations [Not Recovered/Not Resolved]
  - Angioedema [Not Recovered/Not Resolved]
  - Dizziness [Not Recovered/Not Resolved]
  - Somnolence [Not Recovered/Not Resolved]
  - Chest pain [Not Recovered/Not Resolved]
